FAERS Safety Report 13023187 (Version 2)
Quarter: 2017Q1

REPORT INFORMATION
  Report Type: Spontaneous
  Country: US (occurrence: US)
  Receive Date: 20161213
  Receipt Date: 20170210
  Transmission Date: 20170428
  Serious: No
  Sender: FDA-Public Use
  Company Number: US-PFIZER INC-2016571010

PATIENT
  Age: 67 Year
  Sex: Female

DRUGS (1)
  1. TALWIN [Suspect]
     Active Substance: PENTAZOCINE LACTATE
     Indication: HEADACHE
     Dosage: UNK

REACTIONS (1)
  - Drug hypersensitivity [Unknown]
